FAERS Safety Report 4622692-4 (Version None)
Quarter: 2005Q1

REPORT INFORMATION
  Report Type: 
  Country: None (occurrence: None)
  Receive Date: 20050328
  Receipt Date: 20050328
  Transmission Date: 20050727
  Serious: Yes (Other)
  Sender: FDA-Public Use
  Company Number: None

PATIENT
  Age: 42 Year
  Sex: Female
  Weight: 92.0802 kg

DRUGS (1)
  1. METHADONE HCL [Suspect]
     Indication: CROHN'S DISEASE
     Dosage: 10 MG 1/2 TAB PO
     Route: 048

REACTIONS (3)
  - DIZZINESS [None]
  - PRURITUS GENERALISED [None]
  - SEDATION [None]
